FAERS Safety Report 12841865 (Version 2)
Quarter: 2017Q1

REPORT INFORMATION
  Report Type: Spontaneous
  Country: GB (occurrence: GB)
  Receive Date: 20161012
  Receipt Date: 20170323
  Transmission Date: 20170428
  Serious: Yes (Other)
  Sender: FDA-Public Use
  Company Number: GB-BAUSCH-BL-2016-023983

PATIENT
  Sex: Male

DRUGS (1)
  1. BOOTS ALLERGY RELIEF 2% W/V EYE DROPS [Suspect]
     Active Substance: CROMOLYN SODIUM
     Indication: PRODUCT USED FOR UNKNOWN INDICATION
     Route: 047
     Dates: start: 20160927, end: 20160927

REACTIONS (3)
  - Pain [Not Recovered/Not Resolved]
  - Chemical burns of eye [Not Recovered/Not Resolved]
  - Superficial injury of eye [Not Recovered/Not Resolved]

NARRATIVE: CASE EVENT DATE: 20160927
